FAERS Safety Report 17946658 (Version 1)
Quarter: 2020Q2

REPORT INFORMATION
  Report Type: Spontaneous
  Country: FI (occurrence: FI)
  Receive Date: 20200625
  Receipt Date: 20200625
  Transmission Date: 20200714
  Serious: Yes (Other)
  Sender: FDA-Public Use
  Company Number: FI-ELI_LILLY_AND_COMPANY-FI202006008101

PATIENT
  Age: 36 Year
  Sex: Male

DRUGS (5)
  1. LEPONEX [Concomitant]
     Active Substance: CLOZAPINE
     Dosage: UNK, UNKNOWN
     Route: 065
     Dates: start: 20200402
  2. OLANZAPINE. [Suspect]
     Active Substance: OLANZAPINE
     Indication: SCHIZOPHRENIA
     Dosage: 30 MG, DAILY
     Route: 065
     Dates: start: 20200217, end: 20200330
  3. OLANZAPINE. [Suspect]
     Active Substance: OLANZAPINE
     Dosage: 20 MG, DAILY
     Route: 065
     Dates: end: 20200217
  4. OLANZAPINE. [Suspect]
     Active Substance: OLANZAPINE
     Dosage: UNK UNK, UNKNOWN
     Route: 065
     Dates: start: 20200330, end: 20200411
  5. LEPONEX [Concomitant]
     Active Substance: CLOZAPINE
     Indication: SCHIZOPHRENIA
     Dosage: 25 MILLIGRAM
     Route: 065
     Dates: start: 20200330, end: 20200331

REACTIONS (9)
  - Drug ineffective [Unknown]
  - C-reactive protein increased [Not Recovered/Not Resolved]
  - Oropharyngeal pain [Recovered/Resolved]
  - White blood cell count increased [Recovered/Resolved]
  - Pyrexia [Recovered/Resolved]
  - Mucosal disorder [Recovering/Resolving]
  - Neutrophil count increased [Recovered/Resolved]
  - Heart rate increased [Not Recovered/Not Resolved]
  - Productive cough [Recovered/Resolved]

NARRATIVE: CASE EVENT DATE: 2020
